FAERS Safety Report 6678637-9 (Version None)
Quarter: 2010Q2

REPORT INFORMATION
  Report Type: 
  Country: None (occurrence: None)
  Receive Date: 20100413
  Receipt Date: 20100331
  Transmission Date: 20101027
  Serious: Yes (Hospitalization)
  Sender: FDA-Public Use
  Company Number: JP-PFIZER INC-2010042693

PATIENT
  Age: 77 Year
  Sex: Male

DRUGS (4)
  1. CHAMPIX [Suspect]
     Indication: SMOKING CESSATION THERAPY
     Dosage: 1 UNK, UNK
     Route: 048
     Dates: start: 20100302, end: 20100316
  2. OLMESARTAN MEDOXOMIL [Concomitant]
     Dosage: UNK
     Route: 048
  3. AMLODIPINE [Concomitant]
     Dosage: UNK
     Route: 048
  4. ALLEGRA [Concomitant]
     Dosage: UNK
     Route: 048

REACTIONS (1)
  - BRAIN STEM INFARCTION [None]
